FAERS Safety Report 16656491 (Version 1)
Quarter: 2019Q3

REPORT INFORMATION
  Report Type: Spontaneous
  Country: CN (occurrence: CN)
  Receive Date: 20190801
  Receipt Date: 20190801
  Transmission Date: 20191004
  Serious: Yes (Other)
  Sender: FDA-Public Use
  Company Number: CN-PFIZER INC-2019323434

PATIENT
  Age: 30 Year
  Sex: Female

DRUGS (3)
  1. OXYTOCIN. [Suspect]
     Active Substance: OXYTOCIN
     Indication: INTRAPARTUM HAEMORRHAGE
     Dosage: UNK
  2. HEMABATE [Suspect]
     Active Substance: CARBOPROST TROMETHAMINE
     Indication: INTRAPARTUM HAEMORRHAGE
     Dosage: 250 UG, UNK
     Route: 030
     Dates: start: 20190724
  3. TRANEXAMIC ACID. [Suspect]
     Active Substance: TRANEXAMIC ACID
     Indication: INTRAPARTUM HAEMORRHAGE
     Dosage: UNK

REACTIONS (6)
  - Foaming at mouth [Recovered/Resolved]
  - Headache [Recovered/Resolved]
  - Coma [Recovered/Resolved]
  - Confusional state [Recovered/Resolved]
  - Seizure [Recovered/Resolved]
  - Hypertension [Recovered/Resolved]

NARRATIVE: CASE EVENT DATE: 20190724
